FAERS Safety Report 15606936 (Version 2)
Quarter: 2018Q4

REPORT INFORMATION
  Report Type: Report from Study
  Country: US (occurrence: US)
  Receive Date: 20181112
  Receipt Date: 20181116
  Transmission Date: 20190205
  Serious: No
  Sender: FDA-Public Use
  Company Number: PHEH2018US046419

PATIENT
  Sex: Male

DRUGS (1)
  1. ENTRESTO [Suspect]
     Active Substance: SACUBITRIL\VALSARTAN
     Indication: CARDIAC FAILURE CONGESTIVE
     Dosage: 100 (49/51) MG, UNK
     Route: 048

REACTIONS (5)
  - Sinusitis [Unknown]
  - Dizziness [Unknown]
  - Fatigue [Unknown]
  - Respiratory tract congestion [Unknown]
  - Throat irritation [Unknown]
